FAERS Safety Report 7465527-7 (Version None)
Quarter: 2011Q1

REPORT INFORMATION
  Report Type: 
  Country: None (occurrence: None)
  Receive Date: 20110302
  Receipt Date: 20100819
  Transmission Date: 20110831
  Serious: Yes (Other)
  Sender: FDA-Public Use
  Company Number: 163-21880-10080806

PATIENT
  Age: 74 Year
  Sex: Female

DRUGS (2)
  1. REVLIMID [Suspect]
  2. REVLIMID [Suspect]
     Indication: MULTIPLE MYELOMA
     Dosage: 10 MG, DAILY FOR 3WKS ON AND 1WK OFF, PO
     Route: 048
     Dates: start: 20090901

REACTIONS (7)
  - BLOOD GROWTH HORMONE INCREASED [None]
  - ANAEMIA [None]
  - JOINT SWELLING [None]
  - PYREXIA [None]
  - SWELLING FACE [None]
  - CONTUSION [None]
  - NIGHT SWEATS [None]
